FAERS Safety Report 24033534 (Version 1)
Quarter: 2024Q3

REPORT INFORMATION
  Report Type: Report from Study
  Country: US (occurrence: US)
  Receive Date: 20240701
  Receipt Date: 20240701
  Transmission Date: 20241017
  Serious: No
  Sender: ROCHE
  Company Number: US-ROCHE-3532985

PATIENT
  Age: 2 Year
  Sex: Female
  Weight: 11.8 kg

DRUGS (1)
  1. EVRYSDI [Suspect]
     Active Substance: RISDIPLAM
     Indication: Spinal muscular atrophy
     Dosage: 3.8 ML
     Route: 050

REACTIONS (3)
  - Cough [Recovered/Resolved]
  - Nasopharyngitis [Recovered/Resolved]
  - Pyrexia [Recovered/Resolved]
